FAERS Safety Report 8368386-3 (Version None)
Quarter: 2012Q2

REPORT INFORMATION
  Report Type: 
  Country: None (occurrence: None)
  Receive Date: 20120517
  Receipt Date: 20120508
  Transmission Date: 20120825
  Serious: Yes (Death, Hospitalization)
  Sender: FDA-Public Use
  Company Number: CA-ELI_LILLY_AND_COMPANY-CA201201003170

PATIENT
  Age: 87 Year
  Sex: Female

DRUGS (9)
  1. FORTEO [Suspect]
     Indication: OSTEOPOROSIS
     Dosage: 20 UG, QD
     Route: 058
     Dates: start: 20101110, end: 20111001
  2. ZOCOR [Concomitant]
  3. ATACAND [Concomitant]
  4. CARBOCAL D [Concomitant]
     Dosage: 400 UG, QD
  5. LANOXIN [Concomitant]
  6. LASIX [Concomitant]
     Dosage: 40 MG, BID
  7. HEPARIN [Concomitant]
     Dosage: UNK, UNKNOWN
     Route: 065
  8. LOPRESSOR [Concomitant]
  9. D-TABS [Concomitant]
     Dosage: 10000 IU, WEEKLY (1/W)

REACTIONS (6)
  - VASCULAR GRAFT [None]
  - POST PROCEDURAL COMPLICATION [None]
  - WOUND [None]
  - GASTROINTESTINAL HAEMORRHAGE [None]
  - WOUND COMPLICATION [None]
  - IMPAIRED HEALING [None]
